FAERS Safety Report 23092265 (Version 1)
Quarter: 2023Q4

REPORT INFORMATION
  Report Type: Spontaneous
  Country: US (occurrence: US)
  Receive Date: 20231021
  Receipt Date: 20231021
  Transmission Date: 20240110
  Serious: No
  Sender: FDA-Public Use
  Company Number: US-ABBVIE-5456194

PATIENT
  Sex: Female

DRUGS (2)
  1. CREON [Suspect]
     Active Substance: PANCRELIPASE AMYLASE\PANCRELIPASE LIPASE\PANCRELIPASE PROTEASE
     Indication: Product used for unknown indication
     Dosage: FREQUENCY TEXT: 2 CAPSULES THREE TIMES A DAY, END DATE 2023
     Route: 048
  2. CREON [Suspect]
     Active Substance: PANCRELIPASE AMYLASE\PANCRELIPASE LIPASE\PANCRELIPASE PROTEASE
     Indication: Product used for unknown indication
     Dosage: 12000+24000 UNITS TO MAKE UP 36000 UNITS?FREQUENCY TEXT: 2 CAPSULES THREE TIMES A DAY, FORM STREN...
     Route: 048
     Dates: start: 202310

REACTIONS (2)
  - Diarrhoea [Unknown]
  - Faeces soft [Unknown]
